FAERS Safety Report 8308557-5 (Version None)
Quarter: 2012Q2

REPORT INFORMATION
  Report Type: 
  Country: None (occurrence: None)
  Receive Date: 20120424
  Receipt Date: 20120411
  Transmission Date: 20120825
  Serious: Yes (Other)
  Sender: FDA-Public Use
  Company Number: CA-ELI_LILLY_AND_COMPANY-CA201204003502

PATIENT
  Age: 56 Year
  Sex: Male
  Weight: 78 kg

DRUGS (3)
  1. CYMBALTA [Suspect]
     Dosage: 60 MG, QD
  2. CLONAZEPAM [Concomitant]
  3. TRAMADOL HYDROCHLORIDE/ACETAMINOPHEN [Concomitant]

REACTIONS (4)
  - LACERATION [None]
  - PANCREATITIS [None]
  - HEPATIC CYST [None]
  - FATIGUE [None]
